FAERS Safety Report 5774115-X (Version None)
Quarter: 2008Q2

REPORT INFORMATION
  Report Type: 
  Country: None (occurrence: None)
  Receive Date: 20080616
  Receipt Date: 20080603
  Transmission Date: 20081010
  Serious: Yes (Life-Threatening, Disabling, Other)
  Sender: FDA-Public Use
  Company Number: JP-MERCK-0805USA04587

PATIENT
  Age: 58 Year
  Sex: Male
  Weight: 69 kg

DRUGS (5)
  1. HYZAAR [Suspect]
     Indication: HYPERTENSION
     Route: 048
     Dates: start: 20080311, end: 20080512
  2. CALSLOT [Concomitant]
     Indication: HYPERTENSION
     Route: 048
  3. NITOROL-R [Concomitant]
     Indication: ANGINA PECTORIS
     Route: 048
  4. DEPAS [Concomitant]
     Indication: ANXIETY
     Route: 048
  5. SYAKUYAKU-KANZOTO [Suspect]
     Indication: BACK PAIN
     Route: 048
     Dates: start: 20070703, end: 20080525

REACTIONS (8)
  - ASTHENIA [None]
  - BACK PAIN [None]
  - BLOOD CREATINE PHOSPHOKINASE INCREASED [None]
  - DYSSTASIA [None]
  - GAIT DISTURBANCE [None]
  - MUSCULAR WEAKNESS [None]
  - MYALGIA [None]
  - PAIN IN EXTREMITY [None]
